FAERS Safety Report 4390040-3 (Version None)
Quarter: 2004Q2

REPORT INFORMATION
  Report Type: 
  Country: None (occurrence: None)
  Receive Date: 20040630
  Receipt Date: 20040617
  Transmission Date: 20050107
  Serious: Yes (Hospitalization)
  Sender: FDA-Public Use
  Company Number: US-JNJFOC-20040206449

PATIENT
  Age: 38 Year
  Sex: Male
  Weight: 87.0906 kg

DRUGS (2)
  1. REMICADE [Suspect]
     Indication: RHEUMATOID ARTHRITIS
     Dosage: 300 MG, INTRAVENOUS
     Route: 042
     Dates: start: 20030812
  2. PREDNISONE TAB [Concomitant]

REACTIONS (1)
  - PNEUMONIA LEGIONELLA [None]
